FAERS Safety Report 13490872 (Version 1)
Quarter: 2017Q2

REPORT INFORMATION
  Report Type: Spontaneous
  Country: FR (occurrence: FR)
  Receive Date: 20170427
  Receipt Date: 20170427
  Transmission Date: 20170830
  Serious: Yes (Hospitalization)
  Sender: FDA-Public Use
  Company Number: FR-ASTRAZENECA-2017SE42745

PATIENT
  Age: 25573 Day
  Sex: Male

DRUGS (16)
  1. PREDNISOLONE. [Concomitant]
     Active Substance: PREDNISOLONE
     Dates: start: 20160914, end: 20160916
  2. METOCLOPRAMIDE. [Concomitant]
     Active Substance: METOCLOPRAMIDE
     Dosage: 10.0MG UNKNOWN
     Dates: start: 20160913
  3. SODIUM BICARBONATE. [Concomitant]
     Active Substance: SODIUM BICARBONATE
     Indication: ACID BASE BALANCE ABNORMAL
     Dosage: 42 ML/H
  4. ARACYTINE [Concomitant]
     Active Substance: CYTARABINE
     Dosage: 40.0MG UNKNOWN
     Route: 037
     Dates: start: 20160912
  5. AMOXICILLIN. [Interacting]
     Active Substance: AMOXICILLIN
     Indication: ANTIBIOTIC THERAPY
     Route: 048
     Dates: start: 20160912, end: 20160914
  6. FUROSEMIDE. [Concomitant]
     Active Substance: FUROSEMIDE
     Dates: start: 20160913, end: 20160915
  7. METHOTREXATE. [Interacting]
     Active Substance: METHOTREXATE
     Indication: DIFFUSE LARGE B-CELL LYMPHOMA STAGE IV
     Dosage: 15.0MG UNKNOWN
     Route: 037
     Dates: start: 20160823, end: 20160823
  8. RILMENIDINE [Concomitant]
     Active Substance: RILMENIDINE
     Dates: start: 20160914
  9. ONDANSETRON [Concomitant]
     Active Substance: ONDANSETRON
     Route: 042
     Dates: start: 20160912
  10. FILGRASTIM [Concomitant]
     Active Substance: FILGRASTIM
  11. FASTURTEC [Concomitant]
     Active Substance: RASBURICASE
     Dates: start: 20160914
  12. VORAXAZE [Concomitant]
     Active Substance: GLUCARPIDASE
     Dates: start: 20160916
  13. INEXIUM [Suspect]
     Active Substance: ESOMEPRAZOLE
     Route: 048
     Dates: start: 20160912, end: 20160913
  14. METHOTREXATE. [Interacting]
     Active Substance: METHOTREXATE
     Indication: DIFFUSE LARGE B-CELL LYMPHOMA STAGE IV
     Dosage: 15.0MG UNKNOWN
     Route: 037
     Dates: start: 20160912, end: 20160912
  15. METHOTREXATE. [Interacting]
     Active Substance: METHOTREXATE
     Indication: DIFFUSE LARGE B-CELL LYMPHOMA STAGE IV
     Dosage: 6 G ONCE UNKNOWN
     Route: 042
     Dates: start: 20160913, end: 20160913
  16. ONDANSETRON [Concomitant]
     Active Substance: ONDANSETRON
     Route: 048

REACTIONS (4)
  - Drug interaction [Recovered/Resolved]
  - Chemotherapeutic drug level increased [Recovered/Resolved]
  - Acute kidney injury [Recovered/Resolved]
  - Pancytopenia [Recovered/Resolved]

NARRATIVE: CASE EVENT DATE: 20160914
